FAERS Safety Report 12422839 (Version 1)
Quarter: 2016Q2

REPORT INFORMATION
  Report Type: Spontaneous
  Country: None (occurrence: None)
  Receive Date: 20160531
  Receipt Date: 20160531
  Transmission Date: 20160815
  Serious: No
  Sender: FDA-Public Use
  Company Number: None

PATIENT
  Age: 27 Year
  Sex: Female
  Weight: 70.76 kg

DRUGS (3)
  1. MIRENA [Suspect]
     Active Substance: LEVONORGESTREL
     Indication: CONTRACEPTION
     Dosage: 1 DEVICE 1 EVERY 5 YEARS INTRAUTERINE
     Route: 015
     Dates: start: 20130317, end: 20160523
  2. VITAMIN B12 [Concomitant]
     Active Substance: CYANOCOBALAMIN
  3. ADDERALL XR [Concomitant]
     Active Substance: AMPHETAMINE ASPARTATE\AMPHETAMINE SULFATE\DEXTROAMPHETAMINE SACCHARATE\DEXTROAMPHETAMINE SULFATE

REACTIONS (8)
  - Alopecia [None]
  - Weight increased [None]
  - Depressed mood [None]
  - Migraine [None]
  - Anxiety [None]
  - Visual impairment [None]
  - Abdominal distension [None]
  - Amenorrhoea [None]

NARRATIVE: CASE EVENT DATE: 20160520
